FAERS Safety Report 6261940-4 (Version None)
Quarter: 2009Q3

REPORT INFORMATION
  Report Type: 
  Country: None (occurrence: None)
  Receive Date: 20090709
  Receipt Date: 20090304
  Transmission Date: 20100115
  Serious: Yes (Death, Hospitalization)
  Sender: FDA-Public Use
  Company Number: B0582808A

PATIENT
  Age: 90 Year
  Sex: Female
  Weight: 57 kg

DRUGS (4)
  1. OMACOR [Suspect]
     Dosage: 1000MG PER DAY
     Route: 048
     Dates: start: 20040712, end: 20050401
  2. ASPIRIN [Concomitant]
  3. AMIODARONE HCL [Concomitant]
  4. INSULIN [Concomitant]

REACTIONS (1)
  - BACTERIAL SEPSIS [None]
